FAERS Safety Report 9313889 (Version 2)
Quarter: 2013Q3

REPORT INFORMATION
  Report Type: Report from Study
  Country: CO (occurrence: CO)
  Receive Date: 20130529
  Receipt Date: 20130817
  Transmission Date: 20140515
  Serious: Yes (Death)
  Sender: FDA-Public Use
  Company Number: CO-ROCHE-1229058

PATIENT
  Sex: Male

DRUGS (2)
  1. RANIBIZUMAB [Suspect]
     Indication: DIABETIC RETINAL OEDEMA
     Dosage: LAST INJECTION WAS ON 18/APR/2013
     Route: 050
  2. INSULIN [Concomitant]

REACTIONS (1)
  - Acute myocardial infarction [Fatal]
